FAERS Safety Report 20066641 (Version 3)
Quarter: 2022Q2

REPORT INFORMATION
  Report Type: Report from Study
  Country: PR (occurrence: PR)
  Receive Date: 20211115
  Receipt Date: 20220627
  Transmission Date: 20220720
  Serious: Yes (Other)
  Sender: FDA-Public Use
  Company Number: PR-ABBVIE-21K-131-4124126-00

PATIENT
  Age: 61 Year
  Sex: Female
  Weight: 62.198 kg

DRUGS (20)
  1. HUMIRA [Suspect]
     Active Substance: ADALIMUMAB
     Indication: Rheumatoid arthritis
     Route: 058
     Dates: start: 2017
  2. HUMIRA [Suspect]
     Active Substance: ADALIMUMAB
     Indication: Rheumatoid arthritis
     Route: 058
     Dates: start: 2019, end: 20220609
  3. LYRICA [Concomitant]
     Active Substance: PREGABALIN
     Indication: Fibromyalgia
     Route: 048
     Dates: start: 2013
  4. SYNTHROID [Concomitant]
     Active Substance: LEVOTHYROXINE SODIUM
     Indication: Thyroid disorder
     Route: 048
  5. ENALAPRIL [Concomitant]
     Active Substance: ENALAPRIL
     Indication: Hypertension
     Route: 048
     Dates: start: 2011
  6. METFORMIN [Concomitant]
     Active Substance: METFORMIN HYDROCHLORIDE
     Indication: Diabetes mellitus
     Route: 048
     Dates: start: 2014
  7. CALCITRIOL [Concomitant]
     Active Substance: CALCITRIOL
     Indication: Blood calcium
     Route: 048
     Dates: start: 1991
  8. ELAVIL [Concomitant]
     Active Substance: AMITRIPTYLINE HYDROCHLORIDE
     Indication: Facial nerve disorder
     Route: 048
     Dates: start: 2021
  9. GLIPIZIDE [Concomitant]
     Active Substance: GLIPIZIDE
     Indication: Blood glucose increased
     Route: 048
  10. TOZINAMERAN [Concomitant]
     Active Substance: TOZINAMERAN
     Indication: COVID-19
     Dosage: 1ST DOSE
     Route: 030
     Dates: start: 20210404, end: 20210404
  11. TOZINAMERAN [Concomitant]
     Active Substance: TOZINAMERAN
     Dosage: 2ND DOSE
     Route: 030
     Dates: start: 20210425, end: 20210425
  12. TOZINAMERAN [Concomitant]
     Active Substance: TOZINAMERAN
     Dosage: 3ND DOSE
     Route: 030
     Dates: start: 20211026, end: 20211026
  13. KLONOPIN [Concomitant]
     Active Substance: CLONAZEPAM
     Indication: Product used for unknown indication
     Route: 048
  14. CRESTOR [Concomitant]
     Active Substance: ROSUVASTATIN CALCIUM
     Indication: Blood triglycerides
     Route: 048
  15. CRESTOR [Concomitant]
     Active Substance: ROSUVASTATIN CALCIUM
     Indication: Liver disorder
  16. PREDNISONE [Concomitant]
     Active Substance: PREDNISONE
     Indication: Inflammatory marker increased
     Route: 048
     Dates: start: 2015
  17. TRAZODONE [Concomitant]
     Active Substance: TRAZODONE HYDROCHLORIDE
     Indication: Product used for unknown indication
     Route: 048
  18. PRAMIPEXOLE [Concomitant]
     Active Substance: PRAMIPEXOLE
     Indication: Restless legs syndrome
     Route: 048
  19. PEPCID [Concomitant]
     Active Substance: FAMOTIDINE
     Indication: Gastric disorder
     Route: 048
  20. ZETIA [Concomitant]
     Active Substance: EZETIMIBE
     Indication: Liver disorder
     Route: 048

REACTIONS (6)
  - Intervertebral disc displacement [Not Recovered/Not Resolved]
  - Nerve compression [Not Recovered/Not Resolved]
  - Spinal operation [Unknown]
  - Back pain [Unknown]
  - Procedural pain [Recovering/Resolving]
  - Post procedural inflammation [Not Recovered/Not Resolved]

NARRATIVE: CASE EVENT DATE: 20210901
